FAERS Safety Report 9587706 (Version 1)
Quarter: 2013Q4

REPORT INFORMATION
  Report Type: Spontaneous
  Country: US (occurrence: US)
  Receive Date: 20131003
  Receipt Date: 20131003
  Transmission Date: 20140711
  Serious: No
  Sender: FDA-Public Use
  Company Number: US-COVIDIEN/TYCO HEALTHCARE/MALLINCKRODT-T201203627

PATIENT
  Age: 59 Year
  Sex: Male
  Weight: 70.75 kg

DRUGS (8)
  1. EXALGO EXTENDED RELEASE [Suspect]
     Indication: CANCER PAIN
     Dosage: 16 MG, QD
     Dates: start: 20121003
  2. DILAUDID [Concomitant]
     Dosage: UNK, Q4 HRS
     Dates: end: 20121003
  3. PERCOCET                           /00446701/ [Concomitant]
     Indication: PAIN
     Dosage: 7.5/325 MG
     Route: 048
  4. SYMBICORT [Concomitant]
     Indication: LUNG DISORDER
     Dosage: UNK
  5. CARDIZEM                           /00489701/ [Concomitant]
     Indication: HEART RATE ABNORMAL
     Dosage: UNK
  6. COUMADIN                           /00014802/ [Concomitant]
     Indication: ANTICOAGULANT THERAPY
     Dosage: UNK
  7. FOLIC ACID [Concomitant]
     Indication: SUPPLEMENTATION THERAPY
     Dosage: UNK
  8. MULTIVITAMIN                       /00097801/ [Concomitant]
     Indication: SUPPLEMENTATION THERAPY
     Dosage: UNK

REACTIONS (2)
  - Pain [Not Recovered/Not Resolved]
  - Dizziness [Not Recovered/Not Resolved]
